FAERS Safety Report 25856597 (Version 2)
Quarter: 2025Q4

REPORT INFORMATION
  Report Type: Report from Study
  Country: JP (occurrence: JP)
  Receive Date: 20250929
  Receipt Date: 20251014
  Transmission Date: 20260118
  Serious: Yes (Hospitalization)
  Sender: UCB
  Company Number: JP-UCBJ-CD202512481UCBPHAPROD

PATIENT
  Age: 29 Year
  Weight: 42 kg

DRUGS (21)
  1. FENFLURAMINE HYDROCHLORIDE [Suspect]
     Active Substance: FENFLURAMINE HYDROCHLORIDE
     Indication: Lennox-Gastaut syndrome
     Dosage: 0.02 MILLIGRAM/KILOGRAM, 2X/DAY (BID)
  2. FENFLURAMINE HYDROCHLORIDE [Suspect]
     Active Substance: FENFLURAMINE HYDROCHLORIDE
     Dosage: 0.02 MILLIGRAM/KILOGRAM, ONCE DAILY (QD)
  3. FENFLURAMINE HYDROCHLORIDE [Suspect]
     Active Substance: FENFLURAMINE HYDROCHLORIDE
     Dosage: 0.04 MILLIGRAM/KILOGRAM, ONCE DAILY (QD)
  4. FENFLURAMINE HYDROCHLORIDE [Suspect]
     Active Substance: FENFLURAMINE HYDROCHLORIDE
     Dosage: 0.06 MILLIGRAM/KILOGRAM, ONCE DAILY (QD)
  5. FENFLURAMINE HYDROCHLORIDE [Suspect]
     Active Substance: FENFLURAMINE HYDROCHLORIDE
     Dosage: 0.1 MILLIGRAM/KILOGRAM, ONCE DAILY (QD)
  6. FENFLURAMINE HYDROCHLORIDE [Suspect]
     Active Substance: FENFLURAMINE HYDROCHLORIDE
     Dosage: 0.07 MILLIGRAM/KILOGRAM, ONCE DAILY (QD)
  7. E Keppra dry syrup [Concomitant]
     Indication: Lennox-Gastaut syndrome
     Dosage: 3 GRAM, ONCE DAILY (QD)
  8. ZONISAMIDE [Concomitant]
     Active Substance: ZONISAMIDE
     Indication: Lennox-Gastaut syndrome
     Dosage: 320 MILLIGRAM, ONCE DAILY (QD)
  9. MYSTAN [Concomitant]
     Active Substance: CLOBAZAM
     Indication: Lennox-Gastaut syndrome
     Dosage: 22 MILLIGRAM, ONCE DAILY (QD)
  10. FYCOMPA [Concomitant]
     Active Substance: PERAMPANEL
     Indication: Lennox-Gastaut syndrome
     Dosage: 8 MILLIGRAM, ONCE DAILY (QD)
  11. FYCOMPA [Concomitant]
     Active Substance: PERAMPANEL
     Dosage: 9 MILLIGRAM, ONCE DAILY (QD)
  12. MIYA-BM [Concomitant]
     Active Substance: CLOSTRIDIUM BUTYRICUM SPORES STRAIN M-55
     Indication: Product used for unknown indication
     Dosage: 2 GRAM, ONCE DAILY (QD)
  13. CHLORAL HYDRATE [Concomitant]
     Active Substance: CHLORAL HYDRATE
     Indication: Sedative therapy
     Dosage: 1000 MILLIGRAM
  14. VENILON [Concomitant]
     Active Substance: HUMAN IMMUNOGLOBULIN G
     Indication: Lennox-Gastaut syndrome
     Dosage: 5000 MILLIGRAM, ONCE DAILY (QD)
  15. VENILON [Concomitant]
     Active Substance: HUMAN IMMUNOGLOBULIN G
     Dosage: 2500 MILLIGRAM, ONCE DAILY (QD)
  16. VENILON [Concomitant]
     Active Substance: HUMAN IMMUNOGLOBULIN G
     Dosage: 5000 MILLIGRAM, ONCE DAILY (QD)
  17. VENILON [Concomitant]
     Active Substance: HUMAN IMMUNOGLOBULIN G
     Dosage: 2500 MILLIGRAM, ONCE DAILY (QD)
  18. VENILON [Concomitant]
     Active Substance: HUMAN IMMUNOGLOBULIN G
     Dosage: 5000 MILLIGRAM, ONCE DAILY (QD)
  19. VENILON [Concomitant]
     Active Substance: HUMAN IMMUNOGLOBULIN G
     Dosage: 2500 MILLIGRAM, ONCE DAILY (QD)
  20. VENILON [Concomitant]
     Active Substance: HUMAN IMMUNOGLOBULIN G
     Dosage: 5000 MILLIGRAM, ONCE DAILY (QD)
  21. VENILON [Concomitant]
     Active Substance: HUMAN IMMUNOGLOBULIN G
     Dosage: 2500 MILLIGRAM, ONCE DAILY (QD)

REACTIONS (6)
  - Dizziness [Recovering/Resolving]
  - Somnolence [Recovering/Resolving]
  - Nasopharyngitis [Recovered/Resolved]
  - Pyrexia [Recovered/Resolved]
  - Off label use [Unknown]
  - Prescribed underdose [Unknown]
